FAERS Safety Report 8795738 (Version 5)
Quarter: 2014Q4

REPORT INFORMATION
  Report Type: Spontaneous
  Country: US (occurrence: US)
  Receive Date: 20120920
  Receipt Date: 20141117
  Transmission Date: 20150529
  Serious: Yes (Hospitalization, Other)
  Sender: FDA-Public Use
  Company Number: US-009507513-1209USA003649

PATIENT
  Sex: Female
  Weight: 61.22 kg

DRUGS (6)
  1. FOSAMAX [Suspect]
     Active Substance: ALENDRONATE SODIUM
     Indication: OSTEOPOROSIS
     Dosage: 70 MG, QW
     Route: 048
     Dates: start: 20010525, end: 20021224
  2. PROTONIX [Concomitant]
     Active Substance: PANTOPRAZOLE SODIUM
     Dosage: UNK
     Dates: start: 20010118, end: 20080321
  3. PREDNISONE. [Concomitant]
     Active Substance: PREDNISONE
     Indication: RHEUMATOID ARTHRITIS
     Dosage: UNK
  4. ALENDRONATE SODIUM. [Suspect]
     Active Substance: ALENDRONATE SODIUM
     Indication: OSTEOPOROSIS
     Dosage: 35 MG, UNK
     Route: 048
     Dates: start: 20080829, end: 20090511
  5. NEXIUM [Concomitant]
     Active Substance: ESOMEPRAZOLE MAGNESIUM
     Dosage: UNK
     Dates: start: 20010525
  6. CORTICOSTEROIDS (UNSPECIFIED) [Concomitant]
     Active Substance: UNSPECIFIED INGREDIENT
     Indication: PERICARDITIS
     Dosage: UNK
     Dates: start: 199908

REACTIONS (22)
  - Femur fracture [Unknown]
  - Low turnover osteopathy [Unknown]
  - Body height decreased [Unknown]
  - Gastrooesophageal reflux disease [Unknown]
  - Seroma [Unknown]
  - Intramedullary rod insertion [Unknown]
  - Gallbladder operation [Unknown]
  - Hypertension [Unknown]
  - Osteoarthritis [Not Recovered/Not Resolved]
  - Fall [Unknown]
  - Spinal fracture [Unknown]
  - Lumbar spinal stenosis [Unknown]
  - Spinal laminectomy [Unknown]
  - Bone loss [Unknown]
  - Rib fracture [Unknown]
  - Decubitus ulcer [Unknown]
  - Chronic kidney disease [Not Recovered/Not Resolved]
  - Spinal operation [Unknown]
  - Oral discomfort [Unknown]
  - Depression [Unknown]
  - Bladder dysfunction [Not Recovered/Not Resolved]
  - Chronic obstructive pulmonary disease [Not Recovered/Not Resolved]

NARRATIVE: CASE EVENT DATE: 2001
